FAERS Safety Report 23103182 (Version 1)
Quarter: 2023Q4

REPORT INFORMATION
  Report Type: Spontaneous
  Country: US (occurrence: US)
  Receive Date: 20231025
  Receipt Date: 20231025
  Transmission Date: 20240109
  Serious: No
  Sender: FDA-Public Use
  Company Number: US-GSK-US2023144256

PATIENT
  Age: 59 Year
  Sex: Female

DRUGS (1)
  1. BENLYSTA [Suspect]
     Active Substance: BELIMUMAB
     Indication: Systemic lupus erythematosus
     Dosage: 840 MG
     Dates: start: 20210630

REACTIONS (2)
  - Tooth abscess [Recovered/Resolved]
  - Tooth extraction [Unknown]

NARRATIVE: CASE EVENT DATE: 20230911
